FAERS Safety Report 13550550 (Version 1)
Quarter: 2017Q2

REPORT INFORMATION
  Report Type: Spontaneous
  Country: US (occurrence: US)
  Receive Date: 20170516
  Receipt Date: 20170516
  Transmission Date: 20170830
  Serious: No
  Sender: FDA-Public Use
  Company Number: US-BAYER-2017-082630

PATIENT
  Age: 53 Year
  Sex: Male
  Weight: 107 kg

DRUGS (2)
  1. FLONASE [Concomitant]
     Active Substance: FLUTICASONE PROPIONATE
  2. CLARITIN [Suspect]
     Active Substance: LORATADINE
     Route: 065

REACTIONS (3)
  - Ear infection [Unknown]
  - Balance disorder [Not Recovered/Not Resolved]
  - Lacrimation increased [Unknown]
